FAERS Safety Report 15626616 (Version 5)
Quarter: 2019Q1

REPORT INFORMATION
  Report Type: Report from Study
  Country: None (occurrence: CO)
  Receive Date: 20181116
  Receipt Date: 20190206
  Transmission Date: 20190417
  Serious: Yes (Hospitalization, Other)
  Sender: FDA-Public Use
  Company Number: CO-ABBVIE-18K-036-2531709-00

PATIENT
  Age: 50 Year
  Sex: Male
  Weight: 58 kg

DRUGS (1)
  1. HUMIRA [Suspect]
     Active Substance: ADALIMUMAB
     Indication: PSORIASIS
     Route: 058
     Dates: start: 20121001, end: 20180911

REACTIONS (9)
  - Splenomegaly [Recovering/Resolving]
  - Abdominal pain [Recovering/Resolving]
  - Pulmonary mass [Recovering/Resolving]
  - Pyrexia [Recovering/Resolving]
  - Diarrhoea [Recovering/Resolving]
  - Hepatomegaly [Recovering/Resolving]
  - Psoriasis [Recovering/Resolving]
  - Hyperthyroidism [Recovering/Resolving]
  - Tuberculosis liver [Recovering/Resolving]

NARRATIVE: CASE EVENT DATE: 201809
